FAERS Safety Report 15516925 (Version 2)
Quarter: 2018Q4

REPORT INFORMATION
  Report Type: Spontaneous
  Country: JP (occurrence: JP)
  Receive Date: 20181017
  Receipt Date: 20181031
  Transmission Date: 20190205
  Serious: Yes (Other)
  Sender: FDA-Public Use
  Company Number: JP-GLAXOSMITHKLINE-JP2018JPN184278

PATIENT
  Sex: Male

DRUGS (7)
  1. ALLERMIST [Suspect]
     Active Substance: FLUTICASONE FUROATE
     Indication: RHINITIS ALLERGIC
     Dosage: 55 ?G, QD
     Route: 045
     Dates: start: 201207
  2. ALLOID G [Concomitant]
     Active Substance: SODIUM ALGINATE
     Dosage: UNK
  3. MAALOX GRANULES FOR SUSPENSION (ALUMINIUM HYDROXIDE GEL, DRIED + MAGNE [Concomitant]
     Dosage: UNK
  4. TAMSULOSIN HYDROCHLORIDE. [Concomitant]
     Active Substance: TAMSULOSIN HYDROCHLORIDE
     Dosage: UNK
  5. TAPROS OPHTHALMIC SOLUTION [Concomitant]
     Dosage: UNK
  6. MOSAPRIDE CITRATE [Concomitant]
     Active Substance: MOSAPRIDE CITRATE
     Dosage: UNK
  7. LANSOPRAZOLE. [Concomitant]
     Active Substance: LANSOPRAZOLE
     Dosage: UNK

REACTIONS (2)
  - Oesophageal candidiasis [Not Recovered/Not Resolved]
  - Underdose [Unknown]
